FAERS Safety Report 15373527 (Version 1)
Quarter: 2018Q3

REPORT INFORMATION
  Report Type: Spontaneous
  Country: US (occurrence: US)
  Receive Date: 20180905
  Receipt Date: 20180905
  Transmission Date: 20181010
  Serious: Yes (Life-Threatening, Hospitalization)
  Sender: FDA-Public Use
  Company Number: None

PATIENT
  Age: 30 Year
  Sex: Female
  Weight: 55.35 kg

DRUGS (1)
  1. NORETHINDRONE 0.35 MG [Suspect]
     Active Substance: NORETHINDRONE
     Indication: CONTRACEPTION
     Dosage: ?          QUANTITY:1 DF DOSAGE FORM;?
     Route: 048
     Dates: start: 20160420, end: 20170824

REACTIONS (9)
  - Pregnancy on oral contraceptive [None]
  - General physical health deterioration [None]
  - Metrorrhagia [None]
  - Fallopian tube perforation [None]
  - Drug ineffective [None]
  - Abdominal pain lower [None]
  - Ectopic pregnancy [None]
  - Intra-abdominal haemorrhage [None]
  - Hypotension [None]

NARRATIVE: CASE EVENT DATE: 20170830
